FAERS Safety Report 11860631 (Version 1)
Quarter: 2015Q4

REPORT INFORMATION
  Report Type: Spontaneous
  Country: US (occurrence: US)
  Receive Date: 20151222
  Receipt Date: 20151222
  Transmission Date: 20160305
  Serious: Yes (Other)
  Sender: FDA-Public Use
  Company Number: US-BAYER-2015-493505

PATIENT
  Age: 77 Year
  Sex: Male
  Weight: 82.54 kg

DRUGS (14)
  1. CRESTOR [Concomitant]
     Active Substance: ROSUVASTATIN CALCIUM
  2. PANTOPRAZOLE [Concomitant]
     Active Substance: PANTOPRAZOLE SODIUM
  3. OMEGA-3 [DOCOSAHEXANOIC ACID,EICOSAPENTAENOIC ACID] [Concomitant]
  4. VESICARE [Concomitant]
     Active Substance: SOLIFENACIN SUCCINATE
  5. NIACIN. [Concomitant]
     Active Substance: NIACIN
  6. VITAMIN C [Concomitant]
     Active Substance: ASCORBIC ACID
  7. LOTRIMIN ANTIFUNGAL NOS [Suspect]
     Active Substance: CLOTRIMAZOLE OR MICONAZOLE NITRATE
     Indication: TINEA CRURIS
     Dosage: 1 DF, QD (EVERY 24 HOURS)
     Route: 061
     Dates: start: 2014
  8. LOTRIMIN AF ANTIFUNGAL [Suspect]
     Active Substance: MICONAZOLE NITRATE
     Indication: TINEA CRURIS
     Dosage: 1 DF, QD (POWDER SPRAY)
     Route: 061
     Dates: start: 2014
  9. PRAMIPEXOLE. [Concomitant]
     Active Substance: PRAMIPEXOLE
  10. GABAPENTIN. [Concomitant]
     Active Substance: GABAPENTIN
  11. BAYER LOW DOSE [Suspect]
     Active Substance: ASPIRIN
     Indication: ISCHAEMIC HEART DISEASE PROPHYLAXIS
  12. TAMSULOSIN [Concomitant]
     Active Substance: TAMSULOSIN
  13. CENTRUM SILVER [Concomitant]
     Active Substance: MINERALS\VITAMINS
  14. POTASSIUM CHLORIDE. [Concomitant]
     Active Substance: POTASSIUM CHLORIDE

REACTIONS (4)
  - Atrial fibrillation [None]
  - Inappropriate schedule of drug administration [Unknown]
  - Product use issue [None]
  - Product use issue [None]

NARRATIVE: CASE EVENT DATE: 2014
